FAERS Safety Report 23055945 (Version 3)
Quarter: 2024Q1

REPORT INFORMATION
  Report Type: Spontaneous
  Country: US (occurrence: US)
  Receive Date: 20231011
  Receipt Date: 20240228
  Transmission Date: 20240410
  Serious: No
  Sender: FDA-Public Use
  Company Number: US-KARYOPHARM-2023KPT001705

PATIENT

DRUGS (24)
  1. XPOVIO [Suspect]
     Active Substance: SELINEXOR
     Indication: Plasma cell myeloma
     Dosage: 80 MG, 2X/WEEK
     Route: 048
     Dates: start: 20230731, end: 202308
  2. XPOVIO [Suspect]
     Active Substance: SELINEXOR
     Dosage: 60 MG, WEEKLY
     Route: 048
     Dates: start: 2023
  3. XPOVIO [Suspect]
     Active Substance: SELINEXOR
     Dosage: 40 MG, WEEKLY
     Route: 048
  4. AMLODIPINE [Concomitant]
     Active Substance: AMLODIPINE BESYLATE
  5. BACLOFEN [Concomitant]
     Active Substance: BACLOFEN
  6. COMPAZINE [Concomitant]
     Active Substance: PROCHLORPERAZINE MALEATE
  7. DEXAMETHASONE [Concomitant]
     Active Substance: DEXAMETHASONE
  8. ISOSORBIDE MONONITRATE [Concomitant]
     Active Substance: ISOSORBIDE MONONITRATE
  9. LOSARTAN [Concomitant]
     Active Substance: LOSARTAN
  10. LUNESTA [Concomitant]
     Active Substance: ESZOPICLONE
  11. METOPROLOL SUCCINATE [Concomitant]
     Active Substance: METOPROLOL SUCCINATE
  12. PERCOCET [Concomitant]
     Active Substance: ACETAMINOPHEN\OXYCODONE HYDROCHLORIDE
  13. SYNTHROID [Concomitant]
     Active Substance: LEVOTHYROXINE SODIUM
  14. TAMSULOSIN [Concomitant]
     Active Substance: TAMSULOSIN
  15. ZOLPIDEM TARTRATE [Concomitant]
     Active Substance: ZOLPIDEM TARTRATE
  16. HYDROCHLOROTHIAZIDE [Concomitant]
     Active Substance: HYDROCHLOROTHIAZIDE
  17. LENALIDOMIDE [Concomitant]
     Active Substance: LENALIDOMIDE
  18. LOVASTATIN [Concomitant]
     Active Substance: LOVASTATIN
  19. OXYCONTIN [Concomitant]
     Active Substance: OXYCODONE HYDROCHLORIDE
  20. POMALYST [Concomitant]
     Active Substance: POMALIDOMIDE
  21. REQUIP [Concomitant]
     Active Substance: ROPINIROLE HYDROCHLORIDE
  22. ACYCLOVIR [Concomitant]
     Active Substance: ACYCLOVIR
  23. PENICILLIN [Concomitant]
     Active Substance: PENICILLIN
  24. FINASTERIDE [Concomitant]
     Active Substance: FINASTERIDE

REACTIONS (6)
  - White blood cell count decreased [Unknown]
  - Plasma cell myeloma [Unknown]
  - Confusional state [Unknown]
  - Platelet count decreased [Not Recovered/Not Resolved]
  - Nausea [Unknown]
  - Diarrhoea [Recovered/Resolved]

NARRATIVE: CASE EVENT DATE: 20230101
